FAERS Safety Report 15747231 (Version 1)
Quarter: 2018Q4

REPORT INFORMATION
  Report Type: Spontaneous
  Country: US (occurrence: US)
  Receive Date: 20181220
  Receipt Date: 20181220
  Transmission Date: 20190205
  Serious: No
  Sender: FDA-Public Use
  Company Number: US-AVADEL SPECIALTY PHARMACEUTICALS, LLC-2018AVA00512

PATIENT
  Age: 72 Year
  Sex: Male

DRUGS (5)
  1. METOPROLOL. [Concomitant]
     Active Substance: METOPROLOL
  2. VITAMIN D3 [Concomitant]
     Active Substance: CHOLECALCIFEROL
  3. XARELTO [Concomitant]
     Active Substance: RIVAROXABAN
  4. NOCTIVA [Suspect]
     Active Substance: DESMOPRESSIN ACETATE
     Dosage: 0.83 ?G, 1X/DAY AT BEDTIME
     Route: 045
     Dates: start: 201811, end: 201811
  5. AMLODIPINE [Concomitant]
     Active Substance: AMLODIPINE BESYLATE

REACTIONS (4)
  - Weight increased [Unknown]
  - Urinary retention [Unknown]
  - Dysuria [Unknown]
  - Fluid retention [Unknown]

NARRATIVE: CASE EVENT DATE: 201811
